FAERS Safety Report 24387542 (Version 1)
Quarter: 2024Q4

REPORT INFORMATION
  Report Type: Spontaneous
  Country: US (occurrence: None)
  Receive Date: 20241001
  Receipt Date: 20241001
  Transmission Date: 20250115
  Serious: No
  Sender: Public
  Company Number: None

PATIENT
  Age: 68 Year
  Sex: Male
  Weight: 112 kg

DRUGS (4)
  1. ENOXAPARIN [Suspect]
     Active Substance: ENOXAPARIN
     Indication: Atrial fibrillation
     Dosage: 120.00 MG TWICE A DAY SUBCUTANEOUS
     Route: 058
     Dates: start: 20240203
  2. ASPIRIN [Suspect]
     Active Substance: ASPIRIN
     Indication: Cardiovascular disorder
     Dosage: 81.00 MG DAILY ORAL ?
     Route: 048
  3. ASPIRIN [Suspect]
     Active Substance: ASPIRIN
     Indication: Surgery
  4. APIXABAN [Suspect]
     Active Substance: APIXABAN

REACTIONS (5)
  - Anaemia [None]
  - Haemorrhage [None]
  - Haematuria [None]
  - Dyspnoea [None]
  - Rectal haemorrhage [None]

NARRATIVE: CASE EVENT DATE: 20240215
